FAERS Safety Report 25385405 (Version 4)
Quarter: 2025Q3

REPORT INFORMATION
  Report Type: Spontaneous
  Country: US (occurrence: US)
  Receive Date: 20250602
  Receipt Date: 20250904
  Transmission Date: 20251020
  Serious: No
  Sender: IPSEN BIOPHARMACEUTICALS, INC.
  Company Number: US-IPSEN Group, Research and Development-2025-12637

PATIENT
  Age: 74 Year
  Sex: Male
  Weight: 88 kg

DRUGS (14)
  1. TAZVERIK [Suspect]
     Active Substance: TAZEMETOSTAT HYDROBROMIDE
     Indication: Follicular lymphoma
     Route: 048
     Dates: start: 20221114
  2. TAZVERIK [Suspect]
     Active Substance: TAZEMETOSTAT HYDROBROMIDE
     Dosage: 800 MG TWICE DAILY
     Route: 048
  3. CARVEDILOL [Concomitant]
     Active Substance: CARVEDILOL
  4. CLARITIN [Concomitant]
     Active Substance: LORATADINE
  5. ELIQUIS [Concomitant]
     Active Substance: APIXABAN
  6. FUROSEMIDE [Concomitant]
     Active Substance: FUROSEMIDE
  7. ACETAMINOPHEN\HYDROCODONE [Concomitant]
     Active Substance: ACETAMINOPHEN\HYDROCODONE
  8. LIDOCAINE AND PRILOCAINE [Concomitant]
     Active Substance: LIDOCAINE\PRILOCAINE
  9. MUCINEX [Concomitant]
     Active Substance: GUAIFENESIN
  10. PREDNISONE [Concomitant]
     Active Substance: PREDNISONE
  11. SPIRONOLACTONE [Concomitant]
     Active Substance: SPIRONOLACTONE
  12. THEOPHYLLINE [Concomitant]
     Active Substance: THEOPHYLLINE
  13. TRELEGY ELLIPTA [Concomitant]
     Active Substance: FLUTICASONE FUROATE\UMECLIDINIUM BROMIDE\VILANTEROL TRIFENATATE
  14. XANAX [Concomitant]
     Active Substance: ALPRAZOLAM

REACTIONS (6)
  - Fatigue [Unknown]
  - Dyspnoea [Not Recovered/Not Resolved]
  - Asthenia [Unknown]
  - Gait inability [Unknown]
  - Pain [Not Recovered/Not Resolved]
  - Oedema peripheral [Not Recovered/Not Resolved]
